FAERS Safety Report 15261616 (Version 2)
Quarter: 2018Q3

REPORT INFORMATION
  Report Type: Report from Study
  Country: DE (occurrence: DE)
  Receive Date: 20180809
  Receipt Date: 20180813
  Transmission Date: 20181010
  Serious: Yes (Death, Hospitalization, Other)
  Sender: FDA-Public Use
  Company Number: DE-BRISTOL-MYERS SQUIBB COMPANY-BMS-2018-073294

PATIENT
  Age: 64 Year
  Sex: Male

DRUGS (2)
  1. NIVOLUMAB [Suspect]
     Active Substance: NIVOLUMAB
     Indication: PRODUCT USED FOR UNKNOWN INDICATION
     Dosage: 297.0 MG, Q2WK
     Route: 042
     Dates: start: 20180124, end: 20180523
  2. NIVOLUMAB [Suspect]
     Active Substance: NIVOLUMAB
     Indication: MALIGNANT MELANOMA
     Dosage: 3 MG/KG, Q2WK
     Route: 042
     Dates: start: 20180124, end: 20180124

REACTIONS (5)
  - Hepatocellular carcinoma [Unknown]
  - Hepatic cirrhosis [Recovered/Resolved with Sequelae]
  - Acute kidney injury [Unknown]
  - Skin disorder [Unknown]
  - Death [Fatal]

NARRATIVE: CASE EVENT DATE: 20180315
